FAERS Safety Report 14144321 (Version 1)
Quarter: 2017Q4

REPORT INFORMATION
  Report Type: Spontaneous
  Country: US (occurrence: US)
  Receive Date: 20171031
  Receipt Date: 20171031
  Transmission Date: 20180321
  Serious: No
  Sender: FDA-Public Use
  Company Number: US-PFIZER INC-2017465513

PATIENT
  Age: 55 Year
  Sex: Female
  Weight: 54.42 kg

DRUGS (5)
  1. SUTENT [Suspect]
     Active Substance: SUNITINIB MALATE
     Indication: METASTATIC RENAL CELL CARCINOMA
     Dosage: 50 MG, CYCLIC (2 WEEKS ON/1 WEEK OFF)
  2. SINGULAIR [Concomitant]
     Active Substance: MONTELUKAST SODIUM
     Dosage: UNK
  3. OXYCODONE [Concomitant]
     Active Substance: OXYCODONE
     Dosage: UNK
  4. AMLODIPINE [Concomitant]
     Active Substance: AMLODIPINE BESYLATE
     Dosage: UNK
  5. ZOFRAN [Concomitant]
     Active Substance: ONDANSETRON HYDROCHLORIDE
     Dosage: UNK

REACTIONS (14)
  - Scab [Unknown]
  - Decreased appetite [Unknown]
  - Peripheral swelling [Unknown]
  - Dysgeusia [Unknown]
  - Joint swelling [Unknown]
  - Dry skin [Unknown]
  - Oral fungal infection [Unknown]
  - Nasal dryness [Unknown]
  - Pruritus [Unknown]
  - Rash [Unknown]
  - Stomatitis [Unknown]
  - Hypertension [Unknown]
  - Hair colour changes [Unknown]
  - Epistaxis [Unknown]
